FAERS Safety Report 16869992 (Version 2)
Quarter: 2019Q4

REPORT INFORMATION
  Report Type: Spontaneous
  Country: US (occurrence: US)
  Receive Date: 20190930
  Receipt Date: 20191018
  Transmission Date: 20200122
  Serious: Yes (Death, Other)
  Sender: FDA-Public Use
  Company Number: US-BAYER-2019-171973

PATIENT
  Age: 80 Year
  Sex: Male

DRUGS (2)
  1. STIVARGA [Suspect]
     Active Substance: REGORAFENIB
     Indication: COLON CANCER METASTATIC
     Dosage: UNK
     Dates: start: 20190627, end: 20190717
  2. LONSURF [Suspect]
     Active Substance: TIPIRACIL HYDROCHLORIDE\TRIFLURIDINE
     Indication: COLON CANCER METASTATIC
     Dosage: UNK
     Dates: start: 20190218, end: 20190717

REACTIONS (7)
  - Performance status decreased [None]
  - Fatigue [None]
  - Weight decreased [None]
  - Adverse drug reaction [None]
  - Colon cancer recurrent [None]
  - Depression [None]
  - Death [Fatal]

NARRATIVE: CASE EVENT DATE: 20190717
